FAERS Safety Report 13682360 (Version 1)
Quarter: 2017Q2

REPORT INFORMATION
  Report Type: Spontaneous
  Country: US (occurrence: US)
  Receive Date: 20170623
  Receipt Date: 20170623
  Transmission Date: 20170830
  Serious: Yes (Other)
  Sender: FDA-Public Use
  Company Number: US-MALLINCKRODT-T201700864

PATIENT
  Age: 76 Year
  Sex: Female
  Weight: 80 kg

DRUGS (2)
  1. H.P. ACTHAR [Suspect]
     Active Substance: CORTICOTROPIN
     Indication: MULTIPLE SCLEROSIS
     Dosage: 80U/1ML
     Route: 065
     Dates: start: 20170217
  2. H.P. ACTHAR [Suspect]
     Active Substance: CORTICOTROPIN
     Dosage: 80U/1ML, ONCE A DAY FOR 10 DAYS
     Route: 030
     Dates: start: 20170314, end: 20170321

REACTIONS (17)
  - Fatigue [Unknown]
  - Increased appetite [Unknown]
  - Headache [Recovered/Resolved]
  - Drug ineffective [Unknown]
  - Stomatitis [Recovered/Resolved]
  - Injection site bruising [Unknown]
  - Sensation of foreign body [Recovered/Resolved]
  - Musculoskeletal discomfort [Unknown]
  - Rash [Recovered/Resolved]
  - Weight increased [Unknown]
  - Thirst [Unknown]
  - Asthenia [Unknown]
  - Injection site haemorrhage [Unknown]
  - Swelling face [Not Recovered/Not Resolved]
  - Oral candidiasis [Recovered/Resolved]
  - Abdominal discomfort [Unknown]
  - Multiple sclerosis [Unknown]

NARRATIVE: CASE EVENT DATE: 20170217
